FAERS Safety Report 4360072-X (Version None)
Quarter: 2004Q2

REPORT INFORMATION
  Report Type: 
  Country: None (occurrence: None)
  Receive Date: 20040519
  Receipt Date: 20040513
  Transmission Date: 20050107
  Serious: Yes (Life-Threatening)
  Sender: FDA-Public Use
  Company Number: 200413704US

PATIENT
  Sex: Male
  Weight: 72.27 kg

DRUGS (10)
  1. TAXOTERE [Suspect]
     Indication: NON-SMALL CELL LUNG CANCER
     Route: 042
     Dates: start: 20040430, end: 20040430
  2. GEMCITABINE [Suspect]
     Indication: NON-SMALL CELL LUNG CANCER
     Route: 042
     Dates: start: 20040430, end: 20040430
  3. DILANTIN [Concomitant]
  4. GEMFIBROZIL [Concomitant]
  5. LIPITOR [Concomitant]
  6. PEPCID [Concomitant]
  7. OXYCONTIN [Concomitant]
  8. TOPROL-XL [Concomitant]
  9. OXYCODONE [Concomitant]
  10. COUMADIN [Concomitant]

REACTIONS (11)
  - ACTIVATED PARTIAL THROMBOPLASTIN TIME PROLONGED [None]
  - ALANINE AMINOTRANSFERASE INCREASED [None]
  - ASTHENIA [None]
  - BLOOD SODIUM DECREASED [None]
  - DEHYDRATION [None]
  - FLANK PAIN [None]
  - MALIGNANT NEOPLASM PROGRESSION [None]
  - METASTASES TO ADRENALS [None]
  - NON-SMALL CELL LUNG CANCER [None]
  - PANCREATIC MASS [None]
  - PROTHROMBIN TIME PROLONGED [None]
